FAERS Safety Report 5814158-0 (Version None)
Quarter: 2008Q3

REPORT INFORMATION
  Report Type: 
  Country: None (occurrence: None)
  Receive Date: 20080715
  Receipt Date: 20080707
  Transmission Date: 20090109
  Serious: Yes (Death)
  Sender: FDA-Public Use
  Company Number: MEDI-0006533

PATIENT
  Age: 5 Month
  Sex: Male
  Weight: 3.9 kg

DRUGS (3)
  1. SYNAGIS [Suspect]
     Indication: ANTIVIRAL PROPHYLAXIS
     Dosage: 60 MG, INTRAMUSCULAR
     Route: 030
     Dates: start: 20071001, end: 20080110
  2. SYNAGIS [Suspect]
     Indication: ANTIVIRAL PROPHYLAXIS
     Dosage: 60 MG, INTRAMUSCULAR
     Route: 030
     Dates: start: 20071001
  3. AMOXICILLN (AMOXICILLIN) [Concomitant]

REACTIONS (3)
  - ACCIDENTAL DEATH [None]
  - OSTEOPENIA [None]
  - UNRESPONSIVE TO STIMULI [None]
